FAERS Safety Report 4372195-X (Version None)
Quarter: 2004Q2

REPORT INFORMATION
  Report Type: 
  Country: None (occurrence: None)
  Receive Date: 20040603
  Receipt Date: 20040603
  Transmission Date: 20050107
  Serious: Yes (Hospitalization)
  Sender: FDA-Public Use
  Company Number: None

PATIENT
  Sex: Male
  Weight: 102.0593 kg

DRUGS (10)
  1. GEMFIBROZIL [Suspect]
     Indication: HYPERLIPIDAEMIA
     Dosage: 600 MG BID ORAL
     Route: 048
     Dates: start: 20020301, end: 20040325
  2. FLUNISOLIDE [Concomitant]
  3. FLUOXETINE [Concomitant]
  4. ASPIRIN [Concomitant]
  5. FEXOFENADINE HCL [Concomitant]
  6. HUMULIN 70/30 [Concomitant]
  7. NORTRIPTYLINE HCL [Concomitant]
  8. RANITIDINE [Concomitant]
  9. FOSINOPRIL SODIUM [Concomitant]
  10. SIMVASTATIN [Concomitant]

REACTIONS (4)
  - PROTEINURIA [None]
  - RED BLOOD CELLS URINE [None]
  - RHABDOMYOLYSIS [None]
  - TRANSAMINASES INCREASED [None]
